FAERS Safety Report 19953526 (Version 1)
Quarter: 2021Q4

REPORT INFORMATION
  Report Type: Spontaneous
  Country: US (occurrence: US)
  Receive Date: 20211013
  Receipt Date: 20211013
  Transmission Date: 20220303
  Serious: Yes (Other)
  Sender: FDA-Public Use
  Company Number: US-PFIZER INC-202101317370

PATIENT
  Age: 5 Decade
  Sex: Female

DRUGS (2)
  1. AMINOPHYLLINE [Suspect]
     Active Substance: AMINOPHYLLINE
  2. LEXISCAN [Suspect]
     Active Substance: REGADENOSON

REACTIONS (1)
  - Seizure [Unknown]
